FAERS Safety Report 24996615 (Version 2)
Quarter: 2025Q1

REPORT INFORMATION
  Report Type: Report from Study
  Country: EG (occurrence: EG)
  Receive Date: 20250221
  Receipt Date: 20250304
  Transmission Date: 20250408
  Serious: Yes (Other)
  Sender: SANDOZ
  Company Number: EG-SANDOZ-SDZ2025EG010992

PATIENT
  Age: 14 Year
  Sex: Male
  Weight: 51.7 kg

DRUGS (4)
  1. IRON [Suspect]
     Active Substance: IRON
     Indication: Product used for unknown indication
     Route: 065
  2. LEVOTHYROXINE SODIUM [Suspect]
     Active Substance: LEVOTHYROXINE SODIUM
     Indication: Product used for unknown indication
     Route: 065
  3. OMNITROPE [Suspect]
     Active Substance: SOMATROPIN
     Indication: Growth hormone deficiency
     Route: 058
     Dates: start: 20231101, end: 20241001
  4. VITAMIN D [Suspect]
     Active Substance: VITAMIN D NOS
     Indication: Product used for unknown indication
     Route: 065

REACTIONS (7)
  - Syncope [Recovered/Resolved]
  - Gastrointestinal disorder [Unknown]
  - Diarrhoea [Unknown]
  - Growth disorder [Unknown]
  - Wrong device used [Unknown]
  - Product availability issue [Unknown]
  - Therapy change [Unknown]

NARRATIVE: CASE EVENT DATE: 20250101
